FAERS Safety Report 7549424-4 (Version None)
Quarter: 2011Q2

REPORT INFORMATION
  Report Type: 
  Country: None (occurrence: None)
  Receive Date: 20110615
  Receipt Date: 20110602
  Transmission Date: 20111010
  Serious: Yes (Other)
  Sender: FDA-Public Use
  Company Number: US-CELGENEUS-163-21880-11011325

PATIENT
  Sex: Male

DRUGS (24)
  1. NOVOLOG [Concomitant]
     Dosage: 70/30
     Route: 065
  2. TOPROL-XL [Concomitant]
     Dosage: 50 MILLIGRAM
     Route: 048
  3. REVLIMID [Suspect]
     Indication: MULTIPLE MYELOMA
     Dosage: 25 MILLIGRAM
     Route: 048
     Dates: start: 20101018, end: 20101222
  4. ASPIRIN [Concomitant]
     Dosage: 325 MILLIGRAM
     Route: 065
  5. COLACE [Concomitant]
     Dosage: 3 TABLET
     Route: 048
  6. CALCIUM CARBONATE [Concomitant]
     Dosage: 2 TABLET
     Route: 048
  7. ZAROXOLYN [Concomitant]
     Dosage: 2.5 MILLIGRAM
     Route: 065
  8. SENOKOT [Concomitant]
     Route: 065
  9. RESTORIL [Concomitant]
     Dosage: 15 MILLIGRAM
     Route: 065
  10. FUROSEMIDE [Concomitant]
     Dosage: 10 MILLIGRAM
     Route: 065
  11. TORSEMIDE [Concomitant]
     Dosage: 20 MILLIGRAM
     Route: 065
  12. REVLIMID [Suspect]
     Dosage: 15 MILLIGRAM
     Route: 048
     Dates: start: 20110111, end: 20110201
  13. MIRALAX [Concomitant]
     Route: 065
  14. CYTOXAN [Concomitant]
     Dosage: 50 MILLIGRAM
     Route: 065
  15. DECADRON [Concomitant]
     Dosage: 4 MILLIGRAM
     Route: 065
  16. PLAVIX [Concomitant]
     Dosage: 25 MILLIGRAM
     Route: 048
  17. PERCOCET [Concomitant]
     Indication: PAIN
     Dosage: 5/325 MG
     Route: 048
  18. LEXAPRO [Concomitant]
     Dosage: 10 MILLIGRAM
     Route: 048
  19. METFORMIN HCL [Concomitant]
     Dosage: 1000 MILLIGRAM
     Route: 065
  20. ZOFRAN [Concomitant]
     Dosage: 8 MILLIGRAM
     Route: 048
  21. COMPAZINE [Concomitant]
     Dosage: 10 MILLIGRAM
     Route: 048
  22. VYTORIN [Concomitant]
     Route: 065
  23. NEXIUM [Concomitant]
     Dosage: 40 MILLIGRAM
     Route: 048
  24. CALCIUM CARBONATE [Concomitant]
     Dosage: 667 MILLIGRAM
     Route: 065

REACTIONS (4)
  - OEDEMA [None]
  - RASH [None]
  - LEUKOCYTOCLASTIC VASCULITIS [None]
  - DYSPNOEA [None]
